FAERS Safety Report 19453393 (Version 1)
Quarter: 2021Q2

REPORT INFORMATION
  Report Type: Spontaneous
  Country: US (occurrence: US)
  Receive Date: 20210623
  Receipt Date: 20210623
  Transmission Date: 20210717
  Serious: No
  Sender: FDA-Public Use
  Company Number: US-PFIZER INC-2021354439

PATIENT
  Age: 70 Year
  Sex: Male

DRUGS (1)
  1. RAPAMUNE [Suspect]
     Active Substance: SIROLIMUS
     Dosage: 1 MG (QTY OF 180 FOR A 90 DAYS SUPPLY)

REACTIONS (4)
  - Rash [Unknown]
  - Joint swelling [Unknown]
  - Decreased appetite [Unknown]
  - Peripheral swelling [Unknown]
